FAERS Safety Report 20020724 (Version 1)
Quarter: 2021Q4

REPORT INFORMATION
  Report Type: Spontaneous
  Country: US (occurrence: US)
  Receive Date: 20211101
  Receipt Date: 20211101
  Transmission Date: 20220303
  Serious: Yes (Death, Life-Threatening, Hospitalization, Other)
  Sender: FDA-Public Use
  Company Number: US-LUPIN PHARMACEUTICALS INC.-2021-21214

PATIENT
  Age: 6 Decade
  Sex: Female

DRUGS (6)
  1. LEFLUNOMIDE [Suspect]
     Active Substance: LEFLUNOMIDE
     Indication: Drug therapy
     Dosage: UNK
     Route: 065
  2. HYDROXYCHLOROQUINE [Suspect]
     Active Substance: HYDROXYCHLOROQUINE
     Indication: Drug therapy
     Dosage: UNK
     Route: 065
  3. TOCILIZUMAB [Suspect]
     Active Substance: TOCILIZUMAB
     Indication: Drug therapy
     Dosage: UNK
     Route: 065
  4. ANAKINRA [Suspect]
     Active Substance: ANAKINRA
     Indication: Drug therapy
     Dosage: UNK
     Route: 065
  5. RITUXIMAB [Suspect]
     Active Substance: RITUXIMAB
     Indication: Drug therapy
     Dosage: UNK
     Route: 065
  6. PREDNISONE [Concomitant]
     Active Substance: PREDNISONE
     Indication: Drug therapy
     Dosage: UNK
     Route: 065

REACTIONS (9)
  - Whipple^s disease [Fatal]
  - Condition aggravated [Fatal]
  - Bundle branch block right [Unknown]
  - Hypotension [Unknown]
  - Hypovolaemic shock [Unknown]
  - Lactic acidosis [Unknown]
  - Multiple organ dysfunction syndrome [Unknown]
  - Hepatic failure [Unknown]
  - Coagulopathy [Unknown]
